FAERS Safety Report 14870430 (Version 6)
Quarter: 2019Q1

REPORT INFORMATION
  Report Type: Spontaneous
  Country: FR (occurrence: FR)
  Receive Date: 20180509
  Receipt Date: 20190107
  Transmission Date: 20190417
  Serious: Yes (Death)
  Sender: FDA-Public Use
  Company Number: FR-ROCHE-2110107

PATIENT
  Age: 39 Year
  Sex: Male

DRUGS (5)
  1. BEVACIZUMAB. [Suspect]
     Active Substance: BEVACIZUMAB
     Indication: NON-SMALL CELL LUNG CANCER METASTATIC
     Route: 065
  2. DURVALUMAB. [Suspect]
     Active Substance: DURVALUMAB
     Indication: NON-SMALL CELL LUNG CANCER METASTATIC
     Dosage: IN SEP/2016, HE RECEIVED MOST RECENT DOSE OF DURVALUMAB
     Route: 065
     Dates: start: 201604
  3. CARBOPLATIN. [Suspect]
     Active Substance: CARBOPLATIN
     Indication: NON-SMALL CELL LUNG CANCER METASTATIC
     Dosage: PLATINUM-BASED CHEMOTHERAPY
     Route: 065
  4. PACLITAXEL. [Suspect]
     Active Substance: PACLITAXEL
     Indication: NON-SMALL CELL LUNG CANCER METASTATIC
     Dosage: UNK
     Route: 065
  5. PEMETREXED. [Suspect]
     Active Substance: PEMETREXED
     Indication: NON-SMALL CELL LUNG CANCER METASTATIC
     Dosage: PLATINUM-BASED CHEMOTHERAPY
     Route: 065

REACTIONS (3)
  - Thrombocytopenia [Fatal]
  - Pulmonary alveolar haemorrhage [Fatal]
  - Immune thrombocytopenic purpura [Fatal]

NARRATIVE: CASE EVENT DATE: 201611
